FAERS Safety Report 19328610 (Version 5)
Quarter: 2021Q3

REPORT INFORMATION
  Report Type: Spontaneous
  Country: US (occurrence: US)
  Receive Date: 20210528
  Receipt Date: 20210823
  Transmission Date: 20211014
  Serious: No
  Sender: FDA-Public Use
  Company Number: NVSC2021US114327

PATIENT
  Sex: Male

DRUGS (1)
  1. DORZOLAMIDE TIMOLOL SANDOZ [Suspect]
     Active Substance: DORZOLAMIDE HYDROCHLORIDE\TIMOLOL MALEATE
     Indication: PRODUCT USED FOR UNKNOWN INDICATION
     Dosage: UNK UNK, BID
     Route: 065

REACTIONS (3)
  - Incorrect dose administered [Unknown]
  - Incorrect route of product administration [Unknown]
  - Product use complaint [Unknown]
